FAERS Safety Report 25464036 (Version 1)
Quarter: 2025Q2

REPORT INFORMATION
  Report Type: Spontaneous
  Country: US (occurrence: US)
  Receive Date: 20250621
  Receipt Date: 20250621
  Transmission Date: 20250716
  Serious: No
  Sender: AUROBINDO
  Company Number: US-AUROBINDO-AUR-APL-2024-044005

PATIENT

DRUGS (2)
  1. ZANTAC 360 [Suspect]
     Active Substance: FAMOTIDINE
     Indication: Dyspepsia
     Route: 065
  2. ZANTAC 360 [Suspect]
     Active Substance: FAMOTIDINE
     Indication: Gastrooesophageal reflux disease

REACTIONS (2)
  - Abdominal discomfort [Unknown]
  - Headache [Unknown]
